FAERS Safety Report 16448859 (Version 1)
Quarter: 2019Q2

REPORT INFORMATION
  Report Type: Spontaneous
  Country: JP (occurrence: JP)
  Receive Date: 20190619
  Receipt Date: 20190619
  Transmission Date: 20190711
  Serious: Yes (Other)
  Sender: FDA-Public Use
  Company Number: JP-BRISTOL-MYERS SQUIBB COMPANY-BMS-2019-058506

PATIENT
  Age: 66 Year
  Sex: Male

DRUGS (4)
  1. OPDIVO [Suspect]
     Active Substance: NIVOLUMAB
     Indication: NON-SMALL CELL LUNG CANCER RECURRENT
     Dosage: UNK
     Route: 041
     Dates: start: 201603, end: 201708
  2. PREDNISOLONE. [Suspect]
     Active Substance: PREDNISOLONE
     Indication: COMPUTERISED TOMOGRAM THORAX ABNORMAL
     Dosage: 20 MG
     Route: 065
  3. OPDIVO [Suspect]
     Active Substance: NIVOLUMAB
     Indication: PRODUCT USED FOR UNKNOWN INDICATION
     Dosage: UNK
     Route: 041
     Dates: start: 201804
  4. PREDNISOLONE. [Suspect]
     Active Substance: PREDNISOLONE
     Indication: INTERSTITIAL LUNG DISEASE
     Dosage: 5 MG
     Route: 065

REACTIONS (3)
  - Osteonecrosis [Unknown]
  - Interstitial lung disease [Recovering/Resolving]
  - Computerised tomogram thorax abnormal [Recovering/Resolving]

NARRATIVE: CASE EVENT DATE: 201708
